FAERS Safety Report 22974283 (Version 2)
Quarter: 2023Q4

REPORT INFORMATION
  Report Type: Report from Study
  Country: US (occurrence: US)
  Receive Date: 20230923
  Receipt Date: 20231030
  Transmission Date: 20240109
  Serious: Yes (Other)
  Sender: FDA-Public Use
  Company Number: US-ABBVIE-5416277

PATIENT
  Age: 62 Year
  Sex: Female

DRUGS (3)
  1. DEPAKOTE ER [Suspect]
     Active Substance: DIVALPROEX SODIUM
     Indication: Seizure
     Dosage: FORM OF STRENGTH: 500 MILLIGRAM?LAST ADMIN DATE : 2023
     Route: 048
     Dates: start: 202307
  2. DEPAKOTE ER [Suspect]
     Active Substance: DIVALPROEX SODIUM
     Indication: Seizure
     Dosage: TIME INTERVAL: 0.33333333 DAYS: FORM OF STRENGTH: 500 MILLIGRAM
     Route: 048
     Dates: start: 1995
  3. DEPAKOTE ER [Suspect]
     Active Substance: DIVALPROEX SODIUM
     Indication: Seizure
     Route: 048
     Dates: start: 201912, end: 202307

REACTIONS (8)
  - Seizure [Recovered/Resolved]
  - Headache [Recovered/Resolved]
  - General symptom [Recovered/Resolved]
  - Intentional product misuse [Not Recovered/Not Resolved]
  - Dizziness [Recovered/Resolved]
  - Mobility decreased [Recovered/Resolved]
  - Fatigue [Recovered/Resolved]
  - Vision blurred [Recovered/Resolved]

NARRATIVE: CASE EVENT DATE: 20230701
